FAERS Safety Report 20903810 (Version 1)
Quarter: 2022Q2

REPORT INFORMATION
  Report Type: Report from Study
  Country: KR (occurrence: KR)
  Receive Date: 20220602
  Receipt Date: 20220602
  Transmission Date: 20220720
  Serious: Yes (Life-Threatening, Hospitalization, Other)
  Sender: FDA-Public Use
  Company Number: KR-BRISTOL-MYERS SQUIBB COMPANY-BMS-2017-029305

PATIENT
  Age: 62 Year
  Sex: Male
  Weight: 62.5 kg

DRUGS (7)
  1. IPILIMUMAB [Suspect]
     Active Substance: IPILIMUMAB
     Indication: Small cell lung cancer
     Route: 042
     Dates: start: 20161206, end: 20170116
  2. FENTANYL [Concomitant]
     Active Substance: FENTANYL
     Indication: Product used for unknown indication
     Dosage: 4.2 MG, UNK
     Route: 065
  3. CAROL-F [Concomitant]
     Indication: Product used for unknown indication
     Dosage: 3 TAB 3 TAB, UNK
     Route: 065
     Dates: start: 20161206
  4. REBAMIPIDE [Concomitant]
     Active Substance: REBAMIPIDE
     Indication: Product used for unknown indication
     Dosage: 300 MG, UNK
     Route: 065
     Dates: start: 20161206
  5. CODEINE [Concomitant]
     Active Substance: CODEINE
     Indication: Product used for unknown indication
     Dosage: 200 MG, UNK
     Route: 065
     Dates: start: 20170116
  6. MEGACE F [Concomitant]
     Indication: Product used for unknown indication
     Dosage: 15 ML, UNK
     Route: 065
     Dates: start: 20170116
  7. URSODIOL [Concomitant]
     Active Substance: URSODIOL
     Indication: Product used for unknown indication
     Dosage: 300 MG, UNK
     Route: 065
     Dates: start: 20170116

REACTIONS (1)
  - Pneumonitis [Not Recovered/Not Resolved]

NARRATIVE: CASE EVENT DATE: 20170402
